FAERS Safety Report 13513466 (Version 2)
Quarter: 2017Q2

REPORT INFORMATION
  Report Type: Spontaneous
  Country: TW (occurrence: TW)
  Receive Date: 20170504
  Receipt Date: 20170518
  Transmission Date: 20170830
  Serious: Yes (Hospitalization, Disabling, Other)
  Sender: FDA-Public Use
  Company Number: TW-SUN PHARMACEUTICAL INDUSTRIES LTD-2017RR-139435

PATIENT
  Age: 65 Year
  Sex: Male

DRUGS (3)
  1. OXALIPLATIN. [Suspect]
     Active Substance: OXALIPLATIN
     Indication: RECTAL CANCER
     Dosage: UNK
     Route: 065
     Dates: start: 20150914
  2. CALCIUM FOLINAT [Suspect]
     Active Substance: LEUCOVORIN CALCIUM
     Indication: RECTAL CANCER
     Dosage: UNK
     Route: 065
     Dates: start: 20150914
  3. FLUOROURACIL. [Suspect]
     Active Substance: FLUOROURACIL
     Indication: RECTAL CANCER
     Dosage: UNK
     Route: 065
     Dates: start: 20150914

REACTIONS (7)
  - Cardiogenic shock [Unknown]
  - Ventricular tachycardia [Unknown]
  - Tumour lysis syndrome [Unknown]
  - Peripheral ischaemia [Unknown]
  - Gangrene [Recovered/Resolved with Sequelae]
  - Acute kidney injury [Unknown]
  - Venous thrombosis [Unknown]
